FAERS Safety Report 7653278-5 (Version None)
Quarter: 2011Q3

REPORT INFORMATION
  Report Type: 
  Country: None (occurrence: None)
  Receive Date: 20110803
  Receipt Date: 20110721
  Transmission Date: 20111222
  Serious: Yes (Hospitalization)
  Sender: FDA-Public Use
  Company Number: PL-UCBSA-034735

PATIENT
  Age: 40 Year
  Sex: Female
  Weight: 75 kg

DRUGS (12)
  1. DEPAKENE [Concomitant]
  2. KEPPRA [Suspect]
     Indication: EPILEPSY
     Dates: start: 20070101, end: 20070101
  3. KEPPRA [Suspect]
     Dates: start: 20070101, end: 20070101
  4. DEPAKENE [Concomitant]
     Dosage: DOSE DECREASED
  5. DEPAKENE [Concomitant]
     Indication: EPILEPSY
     Dosage: 500/1000
     Route: 048
     Dates: start: 19910101
  6. DEPAKENE [Concomitant]
     Dosage: DOSE INCREASED
  7. DEPAKENE [Concomitant]
  8. CARBAMAZEPINE [Suspect]
     Dates: end: 20100101
  9. KEPPRA [Suspect]
     Route: 048
     Dates: start: 20100501, end: 20100501
  10. LAMITRIN [Concomitant]
     Dates: start: 20000101, end: 20070101
  11. LAMITRIN [Concomitant]
     Dosage: 50-75 MG
  12. DIAZEPAM [Concomitant]
     Indication: CONVULSION
     Dosage: 10-20 MG, 10 MG 1-2 INTAKE PER DAY
     Dates: start: 20000101

REACTIONS (12)
  - DIARRHOEA [None]
  - PANCREATITIS [None]
  - ABDOMINAL PAIN [None]
  - VERTIGO [None]
  - CONVULSION [None]
  - PSYCHOMOTOR HYPERACTIVITY [None]
  - HYPONATRAEMIA [None]
  - STATUS EPILEPTICUS [None]
  - ABNORMAL BEHAVIOUR [None]
  - INSOMNIA [None]
  - AGGRESSION [None]
  - MYOCLONIC EPILEPSY [None]
